FAERS Safety Report 16899553 (Version 1)
Quarter: 2019Q4

REPORT INFORMATION
  Report Type: Spontaneous
  Country: US (occurrence: US)
  Receive Date: 20191008
  Receipt Date: 20191008
  Transmission Date: 20200122
  Serious: Yes (Hospitalization)
  Sender: FDA-Public Use
  Company Number: None

PATIENT
  Age: 73 Year
  Sex: Male

DRUGS (10)
  1. ARANESP [Suspect]
     Active Substance: DARBEPOETIN ALFA
     Indication: PRODUCT USED FOR UNKNOWN INDICATION
     Dosage: ?          OTHER FREQUENCY:EVERY 3 WEEKS;?
     Route: 058
     Dates: start: 20190402
  2. METHYLPREN TAB 4 MG [Concomitant]
  3. ASPIRIN TAB 81 MG [Concomitant]
  4. OMEPRAZOLE CAP 20 MG [Concomitant]
  5. FOLIC ACID TAB 1 MG [Concomitant]
  6. MOMETASONE SPR 50 MCG [Concomitant]
  7. COLCHICINE TAB 0.6 MG [Concomitant]
  8. PANTOPRAZOLE TAB 40 MG [Concomitant]
  9. ATORVASTATIN TAB 80 MG [Concomitant]
  10. VENLAFAXINE CAP 75 MG ER [Concomitant]

REACTIONS (2)
  - Hospitalisation [None]
  - Therapy cessation [None]
